FAERS Safety Report 5239356-9 (Version None)
Quarter: 2007Q1

REPORT INFORMATION
  Report Type: 
  Country: None (occurrence: None)
  Receive Date: 20070216
  Receipt Date: 20070208
  Transmission Date: 20070707
  Serious: Yes (Death)
  Sender: FDA-Public Use
  Company Number: US-JNJFOC-20070203585

PATIENT
  Age: 84 Year
  Sex: Female

DRUGS (4)
  1. REOPRO [Suspect]
     Route: 042
  2. REOPRO [Suspect]
     Indication: ACUTE MYOCARDIAL INFARCTION
     Route: 042
  3. SELEPARIN [Concomitant]
     Indication: ACUTE MYOCARDIAL INFARCTION
  4. HEPARIN [Concomitant]
     Indication: ACUTE MYOCARDIAL INFARCTION

REACTIONS (1)
  - HAEMORRHAGE INTRACRANIAL [None]
